FAERS Safety Report 6038734-8 (Version None)
Quarter: 2009Q1

REPORT INFORMATION
  Report Type: 
  Country: None (occurrence: None)
  Receive Date: 20090114
  Receipt Date: 20090114
  Transmission Date: 20090719
  Serious: Yes (Death, Other)
  Sender: FDA-Public Use
  Company Number: None

PATIENT
  Sex: Male
  Weight: 73.3 kg

DRUGS (6)
  1. RITUXIMAB [Suspect]
     Indication: CHRONIC LYMPHOCYTIC LEUKAEMIA
     Dosage: 375 MG/M2 3 TIMES IV PUSH
     Route: 042
     Dates: start: 20080122
  2. RITUXIMAB [Suspect]
     Indication: CHRONIC LYMPHOCYTIC LEUKAEMIA
     Dosage: 375 MG/M2 3 TIMES IV PUSH
     Route: 042
     Dates: start: 20080220
  3. RITUXIMAB [Suspect]
     Indication: CHRONIC LYMPHOCYTIC LEUKAEMIA
     Dosage: 375 MG/M2 3 TIMES IV PUSH
     Route: 042
     Dates: start: 20080227
  4. FLUDARABINE PHOSPHATE [Concomitant]
  5. CYCLOPHOSPHAMIDE [Concomitant]
  6. MYCOPHENOLATE MOFETIL [Concomitant]

REACTIONS (10)
  - ACUTE GRAFT VERSUS HOST DISEASE IN INTESTINE [None]
  - BLOOD CULTURE POSITIVE [None]
  - CYTOMEGALOVIRUS VIRAEMIA [None]
  - DRUG RESISTANCE [None]
  - DYSPNOEA [None]
  - GASTROINTESTINAL BACTERIAL INFECTION [None]
  - KLEBSIELLA INFECTION [None]
  - ROTAVIRUS TEST POSITIVE [None]
  - SEPSIS [None]
  - WHEEZING [None]
